FAERS Safety Report 14473398 (Version 1)
Quarter: 2018Q1

REPORT INFORMATION
  Report Type: Spontaneous
  Country: US (occurrence: US)
  Receive Date: 20180201
  Receipt Date: 20180201
  Transmission Date: 20180509
  Serious: Yes (Hospitalization, Other)
  Sender: FDA-Public Use
  Company Number: US-WEST-WARD PHARMACEUTICALS CORP.-US-H14001-18-00606

PATIENT
  Age: 4 Month
  Sex: Male

DRUGS (2)
  1. FLECAINIDE [Suspect]
     Active Substance: FLECAINIDE
     Indication: ATRIAL TACHYCARDIA
     Route: 065
  2. PROPRANOLOL [Concomitant]
     Active Substance: PROPRANOLOL HYDROCHLORIDE
     Indication: ATRIAL TACHYCARDIA
     Route: 065

REACTIONS (7)
  - Defect conduction intraventricular [Recovered/Resolved]
  - Atrioventricular block first degree [Recovered/Resolved]
  - Decreased activity [Unknown]
  - Sinus bradycardia [Recovered/Resolved]
  - Toxicity to various agents [Recovered/Resolved]
  - Supraventricular extrasystoles [Recovered/Resolved]
  - Lethargy [Unknown]
